FAERS Safety Report 6763293-1 (Version None)
Quarter: 2010Q2

REPORT INFORMATION
  Report Type: 
  Country: None (occurrence: None)
  Receive Date: 20100608
  Receipt Date: 20100608
  Transmission Date: 20101027
  Serious: Yes (Hospitalization)
  Sender: FDA-Public Use
  Company Number: None

PATIENT
  Sex: Female
  Weight: 66.22 kg

DRUGS (2)
  1. CARBOPLATIN [Suspect]
     Dosage: 2 MG
     Dates: end: 20100527
  2. TAXOL [Suspect]
     Dosage: 299 MG
     Dates: end: 20100527

REACTIONS (11)
  - ASPIRATION [None]
  - CARDIO-RESPIRATORY ARREST [None]
  - DRUG HYPERSENSITIVITY [None]
  - GRAND MAL CONVULSION [None]
  - HYPOKALAEMIA [None]
  - HYPOMAGNESAEMIA [None]
  - LOSS OF CONSCIOUSNESS [None]
  - NAUSEA [None]
  - PULSE ABSENT [None]
  - URINARY INCONTINENCE [None]
  - VOMITING [None]
